FAERS Safety Report 9472680 (Version 2)
Quarter: 2013Q3

REPORT INFORMATION
  Report Type: Spontaneous
  Country: CO (occurrence: CO)
  Receive Date: 20130823
  Receipt Date: 20130827
  Transmission Date: 20140515
  Serious: Yes (Other)
  Sender: FDA-Public Use
  Company Number: CO-PFIZER INC-2013243567

PATIENT
  Sex: Male

DRUGS (3)
  1. CARDURAN [Suspect]
     Indication: BENIGN PROSTATIC HYPERPLASIA
     Dosage: 4 MG, 1X/DAY
     Route: 048
     Dates: start: 2003
  2. METOPROLOL [Concomitant]
     Indication: ARRHYTHMIA
     Dosage: HALF A TABLET OF 50 MG, 1X/DAY
     Route: 048
  3. ATORVASTATIN [Concomitant]
     Indication: BLOOD CHOLESTEROL INCREASED
     Dosage: 20 MG, 1X/DAY
     Route: 048

REACTIONS (3)
  - Cardiac disorder [Unknown]
  - Meningioma benign [Unknown]
  - Cardiac disorder [Unknown]
